FAERS Safety Report 23140038 (Version 1)
Quarter: 2023Q4

REPORT INFORMATION
  Report Type: Spontaneous
  Country: US (occurrence: US)
  Receive Date: 20231102
  Receipt Date: 20231102
  Transmission Date: 20240109
  Serious: No
  Sender: FDA-Public Use
  Company Number: US-PFIZER INC-PV202300176935

PATIENT
  Age: 49 Year
  Sex: Female

DRUGS (1)
  1. NURTEC ODT [Suspect]
     Active Substance: RIMEGEPANT SULFATE
     Dosage: TAKE ONE TABLET BY MOUTH EVERY OTHER DAY. NO MORE THAN ONE DOSE IN 24 HRS
     Route: 048

REACTIONS (2)
  - Muscle twitching [Unknown]
  - Nausea [Unknown]
